FAERS Safety Report 25758452 (Version 2)
Quarter: 2025Q3

REPORT INFORMATION
  Report Type: Spontaneous
  Country: US (occurrence: US)
  Receive Date: 20250904
  Receipt Date: 20250916
  Transmission Date: 20251021
  Serious: Yes (Other)
  Sender: BAUSCH AND LOMB
  Company Number: US-BAUSCHBL-2025BNL015152

PATIENT
  Sex: Male

DRUGS (2)
  1. MURO 128 [Suspect]
     Active Substance: SODIUM CHLORIDE
     Indication: Corneal dystrophy
     Route: 065
     Dates: start: 2000
  2. MURO 128 [Suspect]
     Active Substance: SODIUM CHLORIDE
     Indication: Product used for unknown indication
     Route: 047

REACTIONS (5)
  - Condition aggravated [Unknown]
  - Visual impairment [Unknown]
  - Eye irritation [Unknown]
  - Expired product administered [Unknown]
  - Product physical consistency issue [Unknown]
